FAERS Safety Report 16074038 (Version 2)
Quarter: 2019Q3

REPORT INFORMATION
  Report Type: Spontaneous
  Country: AU (occurrence: AU)
  Receive Date: 20190314
  Receipt Date: 20190717
  Transmission Date: 20191004
  Serious: Yes (Hospitalization, Other)
  Sender: FDA-Public Use
  Company Number: AU-009507513-1606AUS010862

PATIENT
  Sex: Female

DRUGS (2)
  1. AVANZA [Suspect]
     Active Substance: MIRTAZAPINE
     Indication: DEPRESSION
     Dosage: 30MG ONCE PER DAY
     Route: 048
     Dates: start: 2000
  2. LOVAN [Concomitant]
     Active Substance: FLUOXETINE HYDROCHLORIDE
     Dosage: UNK

REACTIONS (47)
  - Pain in extremity [Not Recovered/Not Resolved]
  - Abdominal pain upper [Recovered/Resolved]
  - Urinary tract infection [Unknown]
  - Acrochordon [Unknown]
  - Menorrhagia [Unknown]
  - Helicobacter infection [Recovered/Resolved]
  - Urinary tract infection [Recovered/Resolved]
  - Learning disability [Unknown]
  - Gastrointestinal melanosis [Unknown]
  - Trigger finger [Unknown]
  - Laparoscopic surgery [Unknown]
  - Irritable bowel syndrome [Unknown]
  - Oedema peripheral [Unknown]
  - Anaemia [Unknown]
  - Hypertonic bladder [Unknown]
  - Intervertebral disc degeneration [Unknown]
  - Syncope [Not Recovered/Not Resolved]
  - Suicidal ideation [Not Recovered/Not Resolved]
  - Abdominal pain [Recovered/Resolved]
  - Confusional state [Recovered/Resolved]
  - Vision blurred [Recovered/Resolved]
  - Urinary tract infection [Recovered/Resolved]
  - Cholelithiasis [Unknown]
  - Back pain [Unknown]
  - Tooth infection [Unknown]
  - Breast tenderness [Recovered/Resolved]
  - Fatigue [Recovered/Resolved]
  - Somnolence [Recovered/Resolved]
  - Haematuria [Unknown]
  - Surgery [Unknown]
  - Nervousness [Recovered/Resolved]
  - Disturbance in attention [Recovered/Resolved]
  - Drug interaction [Not Recovered/Not Resolved]
  - Mental disability [Not Recovered/Not Resolved]
  - Depression [Not Recovered/Not Resolved]
  - Premenstrual syndrome [Recovering/Resolving]
  - Varicose vein [Recovered/Resolved]
  - Conversion disorder [Unknown]
  - Muscle spasms [Recovered/Resolved]
  - Headache [Recovered/Resolved]
  - Dizziness [Recovered/Resolved]
  - Feeling abnormal [Unknown]
  - Aphthous ulcer [Unknown]
  - Milk allergy [Unknown]
  - Oral neoplasm [Unknown]
  - Food allergy [Unknown]
  - Infection [Recovered/Resolved]

NARRATIVE: CASE EVENT DATE: 2001
